FAERS Safety Report 15753025 (Version 1)
Quarter: 2018Q4

REPORT INFORMATION
  Report Type: Report from Study
  Country: IT (occurrence: IT)
  Receive Date: 20181221
  Receipt Date: 20181221
  Transmission Date: 20190205
  Serious: Yes (Hospitalization)
  Sender: FDA-Public Use
  Company Number: IT-TEVA-2018-IT-989313

PATIENT
  Age: 81 Year
  Sex: Male

DRUGS (8)
  1. RAMIPRIL. [Suspect]
     Active Substance: RAMIPRIL
     Route: 065
  2. PANTORC [Concomitant]
     Active Substance: PANTOPRAZOLE SODIUM
  3. OMNIC [Concomitant]
     Active Substance: TAMSULOSIN HYDROCHLORIDE
  4. LEDERFOLIN [Concomitant]
     Active Substance: LEUCOVORIN CALCIUM
  5. TORVAST [Concomitant]
     Active Substance: ATORVASTATIN
  6. CARDIOASPIRIN [Suspect]
     Active Substance: ASPIRIN
     Route: 065
  7. HUMALOG [Concomitant]
     Active Substance: INSULIN LISPRO
  8. ALMARYTM [Concomitant]
     Active Substance: FLECAINIDE ACETATE

REACTIONS (3)
  - Hyponatraemia [Unknown]
  - Rectal haemorrhage [Unknown]
  - Anaemia [Unknown]

NARRATIVE: CASE EVENT DATE: 20181104
